FAERS Safety Report 24142211 (Version 1)
Quarter: 2024Q3

REPORT INFORMATION
  Report Type: Spontaneous
  Country: CA (occurrence: CA)
  Receive Date: 20240726
  Receipt Date: 20240726
  Transmission Date: 20241017
  Serious: Yes (Hospitalization, Other)
  Sender: GENMAB
  Company Number: CA-GENMAB-2024-02709

PATIENT
  Age: 74 Year
  Sex: Female

DRUGS (1)
  1. EPKINLY [Suspect]
     Active Substance: EPCORITAMAB-BYSP
     Indication: Diffuse large B-cell lymphoma
     Dosage: 48 MG, CYCLICAL
     Route: 058

REACTIONS (4)
  - Cancer pain [Unknown]
  - Hospitalisation [Unknown]
  - Lymphoma [Unknown]
  - Abdominal distension [Unknown]
